FAERS Safety Report 17399931 (Version 1)
Quarter: 2020Q1

REPORT INFORMATION
  Report Type: Spontaneous
  Country: GB (occurrence: GB)
  Receive Date: 20200211
  Receipt Date: 20200211
  Transmission Date: 20200409
  Serious: Yes (Other)
  Sender: FDA-Public Use
  Company Number: GB-TEVA-2020-GB-1184101

PATIENT
  Age: 20 Year
  Sex: Male
  Weight: 64.41 kg

DRUGS (1)
  1. LACTULOSE. [Suspect]
     Active Substance: LACTULOSE
     Indication: CONSTIPATION
     Dosage: 30 ML
     Route: 048
     Dates: start: 20200115, end: 20200115

REACTIONS (2)
  - Palpitations [Not Recovered/Not Resolved]
  - Tremor [Unknown]

NARRATIVE: CASE EVENT DATE: 20200115
